FAERS Safety Report 9551226 (Version 2)
Quarter: 2013Q4

REPORT INFORMATION
  Report Type: Spontaneous
  Country: US (occurrence: US)
  Receive Date: 20130925
  Receipt Date: 20131018
  Transmission Date: 20140711
  Serious: Yes (Hospitalization)
  Sender: FDA-Public Use
  Company Number: US-BIOGENIDEC-2013BI090605

PATIENT
  Age: 46 Year
  Sex: Female

DRUGS (2)
  1. TYSABRI [Suspect]
     Indication: MULTIPLE SCLEROSIS
     Route: 042
     Dates: start: 20120309, end: 201307
  2. TYSABRI [Suspect]
     Indication: MULTIPLE SCLEROSIS
     Route: 042
     Dates: start: 20130925

REACTIONS (4)
  - Hepatic enzyme increased [Unknown]
  - Cholelithiasis [Unknown]
  - Gallbladder disorder [Unknown]
  - Liver disorder [Recovered/Resolved]
